FAERS Safety Report 4635549-X (Version None)
Quarter: 2005Q2

REPORT INFORMATION
  Report Type: 
  Country: None (occurrence: None)
  Receive Date: 20050413
  Receipt Date: 20050308
  Transmission Date: 20051028
  Serious: Yes (Hospitalization)
  Sender: FDA-Public Use
  Company Number: 800338

PATIENT
  Sex: Male

DRUGS (1)
  1. DIANEAL [Suspect]

REACTIONS (9)
  - CULTURE POSITIVE [None]
  - DEHYDRATION [None]
  - DIARRHOEA [None]
  - FEELING ABNORMAL [None]
  - HYPOTENSION [None]
  - PERITONITIS [None]
  - PHARMACEUTICAL PRODUCT COMPLAINT [None]
  - PROCEDURAL COMPLICATION [None]
  - STAPHYLOCOCCAL INFECTION [None]
